FAERS Safety Report 9020145 (Version 2)
Quarter: 2014Q1

REPORT INFORMATION
  Report Type: Spontaneous
  Country: US (occurrence: US)
  Receive Date: 20130119
  Receipt Date: 20140206
  Transmission Date: 20141002
  Serious: No
  Sender: FDA-Public Use
  Company Number: US-ALLERGAN-1210522US

PATIENT
  Sex: Female

DRUGS (1)
  1. BOTOX COSMETIC [Suspect]
     Indication: SKIN WRINKLING
     Dosage: 20 UNITS, SINGLE
     Route: 030
     Dates: start: 201306, end: 201306

REACTIONS (4)
  - Injection site rash [Recovered/Resolved]
  - Headache [Unknown]
  - Swelling face [Recovered/Resolved]
  - Drug ineffective [Unknown]
